FAERS Safety Report 6709608-1 (Version None)
Quarter: 2010Q2

REPORT INFORMATION
  Report Type: 
  Country: None (occurrence: None)
  Receive Date: 20100430
  Receipt Date: 20100423
  Transmission Date: 20101027
  Serious: Yes (Hospitalization)
  Sender: FDA-Public Use
  Company Number: 2010SP023226

PATIENT
  Age: 50 Year
  Sex: Male

DRUGS (2)
  1. PEG-INTRON [Suspect]
     Indication: CHRONIC HEPATITIS
     Dates: start: 20100101
  2. REBETOL [Suspect]
     Indication: HEPATITIS C
     Dates: start: 20100101

REACTIONS (2)
  - HEPATIC NEOPLASM [None]
  - HEPATIC NEOPLASM MALIGNANT [None]
